FAERS Safety Report 15332901 (Version 3)
Quarter: 2018Q4

REPORT INFORMATION
  Report Type: Spontaneous
  Country: US (occurrence: US)
  Receive Date: 20180830
  Receipt Date: 20181220
  Transmission Date: 20190204
  Serious: Yes (Hospitalization, Other)
  Sender: FDA-Public Use
  Company Number: US-PRINSTON PHARMACEUTICAL INC.-2018PRN00658

PATIENT
  Sex: Female
  Weight: 120.18 kg

DRUGS (17)
  1. AMLODIPINE [Concomitant]
     Active Substance: AMLODIPINE BESYLATE
     Dosage: 5 MG
  2. AMLODIPINE [Concomitant]
     Active Substance: AMLODIPINE BESYLATE
     Dosage: 2.5 MG, 1X/DAY
     Route: 048
     Dates: end: 201808
  3. ALBUTEROL. [Concomitant]
     Active Substance: ALBUTEROL
     Dosage: 180 ?G, 6X/DAY (EVERY 4 HOURS) AS NEEDED
  4. FAMOTIDINE. [Concomitant]
     Active Substance: FAMOTIDINE
     Dosage: 20 MG, EVERY 12 HOURS
     Route: 042
  5. FLONASE [Concomitant]
     Active Substance: FLUTICASONE PROPIONATE
     Dosage: 100 ?G, 1X/DAY IN EACH NOSTRIL
  6. MELATONIN [Concomitant]
     Active Substance: MELATONIN
     Dosage: 10 MG, 1X/DAY AT BEDTIME
     Route: 048
  7. LOSARTAN POTASSIUM AND HYDROCHLOROTHIAZIDE [Suspect]
     Active Substance: HYDROCHLOROTHIAZIDE\LOSARTAN POTASSIUM
     Dosage: 1 TABLETS, 1X/DAY
     Route: 048
  8. SPIRONOLACTONE. [Concomitant]
     Active Substance: SPIRONOLACTONE
     Dosage: 25 MG, 1X/DAY
     Route: 048
     Dates: end: 201808
  9. ALBUTEROL. [Concomitant]
     Active Substance: ALBUTEROL
     Dosage: 90 ?G, 6X/DAY (EVERY 4 HOURS)
  10. LOSARTAN POTASSIUM. [Suspect]
     Active Substance: LOSARTAN POTASSIUM
     Indication: HYPERTENSION
     Dosage: UNK
     Dates: start: 20180718
  11. VALSARTAN AND HYDROCHLOROTHIAZIDE [Suspect]
     Active Substance: HYDROCHLOROTHIAZIDE\VALSARTAN
     Indication: HYPERTENSION
     Dosage: 320/25 MG ONCE DAILY
     Route: 048
     Dates: end: 20180718
  12. METOPROLOL. [Concomitant]
     Active Substance: METOPROLOL
     Dosage: 25 MG, 2X/DAY
     Route: 048
  13. ROSUVASTATIN. [Concomitant]
     Active Substance: ROSUVASTATIN
     Dosage: 5 MG, 1X/DAY
     Route: 048
  14. NITROGLYCERIN. [Concomitant]
     Active Substance: NITROGLYCERIN
     Dosage: 0.4 MG EERY 5 MINUTES AS NEEDED FOR CHEST PAIN
     Route: 060
  15. FLAGYL [Suspect]
     Active Substance: METRONIDAZOLE\METRONIDAZOLE HYDROCHLORIDE
     Dosage: 500 MG EVERY 8 HOURS
     Route: 042
  16. OMEPRAZOLE. [Concomitant]
     Active Substance: OMEPRAZOLE
     Dosage: 40 MG, 1X/DAY
     Route: 048
  17. VITAMIN D3 [Concomitant]
     Active Substance: CHOLECALCIFEROL
     Dosage: 2000 IU, 1X/DAY
     Route: 048

REACTIONS (44)
  - Cardiac failure [Unknown]
  - Umbilical hernia [Unknown]
  - Dizziness [Not Recovered/Not Resolved]
  - Vision blurred [Unknown]
  - Oedema peripheral [Unknown]
  - Intestinal sepsis [Unknown]
  - Cerebral ventricle dilatation [Unknown]
  - Feeling cold [Unknown]
  - Microangiopathy [Unknown]
  - Diverticulitis [Unknown]
  - Gastroenteritis [Unknown]
  - Visual impairment [Unknown]
  - Lymphadenopathy mediastinal [Unknown]
  - Cardiomegaly [Unknown]
  - Lacunar infarction [Unknown]
  - Diverticulum [Unknown]
  - Sleep apnoea syndrome [Unknown]
  - Ileus [Unknown]
  - Cerebellar atrophy [Unknown]
  - Tension headache [Recovering/Resolving]
  - Acute kidney injury [Unknown]
  - Arteriosclerosis coronary artery [Unknown]
  - Hepatic steatosis [Unknown]
  - Spinal osteoarthritis [Unknown]
  - Uterine leiomyoma [Unknown]
  - Pulmonary hypertension [Unknown]
  - Type 2 diabetes mellitus [Unknown]
  - Pericardial effusion [Unknown]
  - Eyelid ptosis [Unknown]
  - Respiratory failure [Recovered/Resolved]
  - Spinal column stenosis [Unknown]
  - Basal ganglia infarction [Unknown]
  - Cerebral atrophy [Unknown]
  - Chills [Recovered/Resolved]
  - Middle ear effusion [Unknown]
  - Vascular calcification [Unknown]
  - Loss of consciousness [Recovered/Resolved]
  - Coronary artery disease [Unknown]
  - Deep vein thrombosis [Recovered/Resolved]
  - Gallbladder disorder [Recovered/Resolved]
  - Acquired diaphragmatic eventration [Unknown]
  - Migraine [Unknown]
  - Reflux gastritis [Not Recovered/Not Resolved]
  - Ovarian cyst [Unknown]

NARRATIVE: CASE EVENT DATE: 2018
